FAERS Safety Report 10648520 (Version 1)
Quarter: 2014Q4

REPORT INFORMATION
  Report Type: Spontaneous
  Country: US (occurrence: None)
  Receive Date: 20141204
  Receipt Date: 20141204
  Transmission Date: 20150529
  Serious: Yes (Hospitalization)
  Sender: FDA-Public Use
  Company Number: 2014-15027

PATIENT
  Age: 71 Year
  Sex: Male
  Weight: 75 kg

DRUGS (3)
  1. LISINOPRIL. [Concomitant]
     Active Substance: LISINOPRIL
  2. RAPAFLO [Suspect]
     Active Substance: SILODOSIN
     Indication: MICTURITION URGENCY
     Dosage: 1 DF
     Route: 048
     Dates: end: 201312
  3. SYNTHROID [Concomitant]
     Active Substance: LEVOTHYROXINE SODIUM

REACTIONS (1)
  - Dizziness [None]

NARRATIVE: CASE EVENT DATE: 201309
